FAERS Safety Report 9358500 (Version 1)
Quarter: 2013Q2

REPORT INFORMATION
  Report Type: Spontaneous
  Country: CH (occurrence: CH)
  Receive Date: 20130620
  Receipt Date: 20130620
  Transmission Date: 20140414
  Serious: Yes (Other)
  Sender: FDA-Public Use
  Company Number: CH-009507513-1306CHE006416

PATIENT
  Age: 30 Year
  Sex: Female

DRUGS (11)
  1. ESMERON [Suspect]
     Dosage: 40 MG, 1 PER 1 TOTAL
     Route: 064
     Dates: start: 20130408, end: 20130408
  2. EPHEDRINE [Suspect]
     Indication: ANAESTHESIA
     Dosage: 10 MG, 1 PER 1 TOTAL
     Route: 064
     Dates: start: 20130408, end: 20130408
  3. CATAPRESAN [Suspect]
     Dosage: 30 MICROGRAM, 1 PER 1 TOTAL
     Route: 064
     Dates: start: 20130408, end: 20130408
  4. SUFENTA [Suspect]
     Indication: ANAESTHESIA
     Dosage: 89.6 MICROGRAM, 1 PER 1 TOTAL
     Route: 064
     Dates: start: 20130408, end: 20130408
  5. PROPOFOL [Suspect]
     Dosage: 180 MG, 1 PER 1 TOTAL
     Route: 064
     Dates: start: 20130408, end: 20130408
  6. KETALAR [Suspect]
     Dosage: 20 MG, 1 PER 1 TOTAL
     Route: 064
     Dates: start: 20130408, end: 20130408
  7. LIDOCAINE [Suspect]
     Dosage: 40 MG, 1 PER 1 TOTAL
     Route: 064
     Dates: start: 20130408, end: 20130408
  8. CEFUROXIME [Suspect]
     Dosage: 250 MG, 1 PER 1 TOTAL
     Route: 064
     Dates: start: 20130408, end: 20130418
  9. PREDNISONE [Suspect]
     Dosage: 50 MG, 1 PER 1 TOTAL
     Route: 064
     Dates: start: 20130408, end: 20130413
  10. IBUPROFEN [Suspect]
     Dosage: UNK
     Route: 064
     Dates: start: 20130408, end: 20130413
  11. TRAMADOL HYDROCHLORIDE [Suspect]
     Dosage: UNK
     Route: 064
     Dates: start: 20130408, end: 20130413

REACTIONS (1)
  - Exposure during pregnancy [Unknown]
